FAERS Safety Report 7338930-3 (Version None)
Quarter: 2011Q1

REPORT INFORMATION
  Report Type: 
  Country: None (occurrence: None)
  Receive Date: 20110308
  Receipt Date: 20110222
  Transmission Date: 20110831
  Serious: Yes (Other)
  Sender: FDA-Public Use
  Company Number: DE-GENENTECH-314585

PATIENT
  Age: 65 Year
  Sex: Female

DRUGS (2)
  1. MABTHERA [Suspect]
     Indication: PRODUCT USED FOR UNKNOWN INDICATION
     Dosage: UNK
     Route: 065
  2. CHEMOTHERAPY NOS [Concomitant]
     Dosage: 2 CYCLES IN COMBINATION WITH RITUXIMAB

REACTIONS (3)
  - PARALYSIS [None]
  - JC VIRUS INFECTION [None]
  - GLIAL SCAR [None]
